FAERS Safety Report 6158610-X (Version None)
Quarter: 2009Q2

REPORT INFORMATION
  Report Type: 
  Country: None (occurrence: None)
  Receive Date: 20090417
  Receipt Date: 20090410
  Transmission Date: 20091009
  Serious: Yes (Hospitalization, Other)
  Sender: FDA-Public Use
  Company Number: US-AVENTIS-200913162US

PATIENT
  Age: 43 Year
  Sex: Female

DRUGS (4)
  1. APIDRA [Suspect]
     Dosage: DOSE: 10 U BEFORE EACH MEAL AND SLIDING SCALE COVERAGE (AVERAGE 15 UNITS)
     Route: 051
     Dates: start: 20060101
  2. OPTICLIK GREY [Suspect]
     Dates: start: 20050101
  3. LANTUS [Suspect]
     Dosage: DOSE: 10 U IN THE MORNING AND 30 UNITS AT NIGHT
     Route: 058
     Dates: start: 19980101
  4. OPTICLIK (INSULIN INJECTION PEN) [Suspect]
     Dates: start: 20050101

REACTIONS (10)
  - BRONCHITIS [None]
  - DEVICE FAILURE [None]
  - DIABETES MELLITUS INADEQUATE CONTROL [None]
  - DIABETIC KETOACIDOSIS [None]
  - DRUG DOSE OMISSION [None]
  - EXPIRED DRUG ADMINISTERED [None]
  - HYPERGLYCAEMIA [None]
  - HYPOGLYCAEMIA [None]
  - MEDICATION ERROR [None]
  - SOMNOLENCE [None]
